FAERS Safety Report 8394924-0 (Version None)
Quarter: 2012Q2

REPORT INFORMATION
  Report Type: 
  Country: None (occurrence: None)
  Receive Date: 20120530
  Receipt Date: 20110719
  Transmission Date: 20120825
  Serious: No
  Sender: FDA-Public Use
  Company Number: US-GLAXOSMITHKLINE-A0938048A

PATIENT
  Age: 48 Year
  Sex: Female

DRUGS (3)
  1. FLOLAN [Suspect]
     Indication: PRODUCT USED FOR UNKNOWN INDICATION
     Dosage: 89.5NGKM SEE DOSAGE TEXT
     Route: 042
     Dates: start: 20090417
  2. FLOLAN [Suspect]
     Indication: PRODUCT USED FOR UNKNOWN INDICATION
     Route: 042
  3. UNKNOWN [Concomitant]

REACTIONS (3)
  - INJECTION SITE IRRITATION [None]
  - CATHETER SITE RASH [None]
  - CATHETER SITE PRURITUS [None]
